FAERS Safety Report 20498730 (Version 1)
Quarter: 2022Q1

REPORT INFORMATION
  Report Type: Spontaneous
  Country: CN (occurrence: CN)
  Receive Date: 20220222
  Receipt Date: 20220222
  Transmission Date: 20220423
  Serious: Yes (Other)
  Sender: FDA-Public Use
  Company Number: CN-BAYER-2022A025689

PATIENT
  Age: 97 Year
  Sex: Female

DRUGS (1)
  1. XARELTO [Suspect]
     Active Substance: RIVAROXABAN
     Indication: Symptomatic treatment
     Dosage: 10 MG, QD, STOMACH TUBE INJECTION
     Route: 048
     Dates: start: 20211211, end: 20211227

REACTIONS (3)
  - Blood fibrinogen decreased [Recovering/Resolving]
  - Product use issue [Unknown]
  - Off label use [Unknown]

NARRATIVE: CASE EVENT DATE: 20211211
